FAERS Safety Report 8169561-3 (Version None)
Quarter: 2012Q1

REPORT INFORMATION
  Report Type: 
  Country: None (occurrence: None)
  Receive Date: 20120228
  Receipt Date: 20120216
  Transmission Date: 20120608
  Serious: No
  Sender: FDA-Public Use
  Company Number: US-JNJFOC-20120209840

PATIENT
  Sex: Female
  Weight: 113.4 kg

DRUGS (2)
  1. FENTANYL-100 [Suspect]
     Indication: RADICULAR PAIN
     Dosage: 25UG PATCH FROM BATCH 1014412P1 AND 12.5 UG PATCH  FROM BATCH 1108784P1
     Route: 062
     Dates: start: 20111101
  2. FENTANYL-100 [Suspect]
     Indication: GROIN PAIN
     Dosage: 25UG PATCH FROM BATCH 1014412P1 AND 12.5 UG PATCH  FROM BATCH 1108784P1
     Route: 062
     Dates: start: 20111101

REACTIONS (2)
  - LARYNGITIS [None]
  - WRONG TECHNIQUE IN DRUG USAGE PROCESS [None]
